FAERS Safety Report 12478783 (Version 2)
Quarter: 2016Q3

REPORT INFORMATION
  Report Type: Spontaneous
  Country: US (occurrence: US)
  Receive Date: 20160619
  Receipt Date: 20160713
  Transmission Date: 20161109
  Serious: Yes (Other)
  Sender: FDA-Public Use
  Company Number: US-JNJFOC-20160611185

PATIENT
  Age: 4 Year
  Sex: Female
  Weight: 15.42 kg

DRUGS (1)
  1. BENADRYL [Suspect]
     Active Substance: DIPHENHYDRAMINE HYDROCHLORIDE
     Indication: PRODUCT USED FOR UNKNOWN INDICATION
     Dosage: APPROXIMATELY 25 ML
     Route: 048
     Dates: start: 20160611, end: 20160611

REACTIONS (5)
  - Psychomotor hyperactivity [Recovered/Resolved]
  - Accidental exposure to product by child [Recovered/Resolved]
  - Expired product administered [Unknown]
  - Failure of child resistant mechanism for pharmaceutical product [Recovered/Resolved]
  - Anxiety [Recovered/Resolved]

NARRATIVE: CASE EVENT DATE: 20160611
